FAERS Safety Report 7150775-6 (Version None)
Quarter: 2010Q4

REPORT INFORMATION
  Report Type: 
  Country: None (occurrence: None)
  Receive Date: 20101210
  Receipt Date: 20101129
  Transmission Date: 20110411
  Serious: Yes (Other)
  Sender: FDA-Public Use
  Company Number: ES-ROCHE-721282

PATIENT
  Age: 60 Year
  Sex: Female

DRUGS (2)
  1. TRASTUZUMAB [Suspect]
     Indication: BREAST CANCER
     Dosage: AN INITIAL DOSE
     Route: 065
     Dates: start: 20070801
  2. TRASTUZUMAB [Suspect]
     Dosage: WITHDRAWN
     Route: 065

REACTIONS (1)
  - ORGANISING PNEUMONIA [None]
